FAERS Safety Report 4947136-4 (Version None)
Quarter: 2006Q1

REPORT INFORMATION
  Report Type: 
  Country: None (occurrence: None)
  Receive Date: 20060317
  Receipt Date: 20060307
  Transmission Date: 20060701
  Serious: Yes (Hospitalization)
  Sender: FDA-Public Use
  Company Number: IT-SANOFI-SYNTHELABO-A06200600065

PATIENT
  Sex: Male

DRUGS (4)
  1. PLAVIX [Suspect]
     Indication: ARTERIOPATHIC DISEASE
     Route: 048
     Dates: end: 20060302
  2. CARDIOASPIRIN 100 [Suspect]
     Indication: ARTERIOPATHIC DISEASE
     Route: 048
     Dates: end: 20060302
  3. SELEPARINA [Concomitant]
     Indication: ARTERIOPATHIC DISEASE
     Route: 058
  4. TARGOSID [Concomitant]
     Indication: DRUG USE FOR UNKNOWN INDICATION
     Dosage: UNK
     Route: 048

REACTIONS (5)
  - BLISTER [None]
  - DIALYSIS [None]
  - PURPURA NON-THROMBOCYTOPENIC [None]
  - RENAL FAILURE [None]
  - SKIN NECROSIS [None]
